FAERS Safety Report 24671887 (Version 1)
Quarter: 2024Q4

REPORT INFORMATION
  Report Type: Spontaneous
  Country: US (occurrence: US)
  Receive Date: 20241127
  Receipt Date: 20241127
  Transmission Date: 20250115
  Serious: Yes (Other)
  Sender: ELI LILLY AND COMPANY
  Company Number: US-ELI_LILLY_AND_COMPANY-US202411010844

PATIENT

DRUGS (1)
  1. MOUNJARO [Suspect]
     Active Substance: TIRZEPATIDE
     Indication: Product used for unknown indication
     Dosage: UNK UNK, UNKNOWN
     Route: 065
     Dates: start: 2023

REACTIONS (10)
  - Thyroid cancer [Unknown]
  - Retinal detachment [Unknown]
  - Illness [Unknown]
  - Alopecia [Unknown]
  - Feeling cold [Unknown]
  - Meniscus injury [Not Recovered/Not Resolved]
  - Mobility decreased [Unknown]
  - Asthenia [Unknown]
  - Abdominal discomfort [Unknown]
  - Abdominal pain upper [Unknown]
